FAERS Safety Report 10128115 (Version 1)
Quarter: 2014Q2

REPORT INFORMATION
  Report Type: Spontaneous
  Country: US (occurrence: US)
  Receive Date: 20140428
  Receipt Date: 20140428
  Transmission Date: 20141212
  Serious: Yes (Other)
  Sender: FDA-Public Use
  Company Number: US-009507513-1404USA013597

PATIENT
  Sex: Female

DRUGS (1)
  1. SINGULAIR [Suspect]
     Dosage: 10 MG, QD
     Route: 048
     Dates: start: 20120206

REACTIONS (2)
  - Abortion spontaneous [Unknown]
  - Exposure during pregnancy [Recovered/Resolved]
